FAERS Safety Report 18226833 (Version 1)
Quarter: 2020Q3

REPORT INFORMATION
  Report Type: Spontaneous
  Country: CA (occurrence: CA)
  Receive Date: 20200903
  Receipt Date: 20200903
  Transmission Date: 20201103
  Serious: Yes (Other)
  Sender: FDA-Public Use
  Company Number: CA-AUROBINDO-AUR-APL-2020-013080

PATIENT
  Age: 66 Year
  Sex: Male

DRUGS (1)
  1. AURO?FLECAINIDE TABLETS [Suspect]
     Active Substance: FLECAINIDE
     Indication: ATRIAL FIBRILLATION
     Dosage: 100 MILLIGRAM, TWO TIMES A DAY
     Route: 048
     Dates: start: 20200110, end: 202002

REACTIONS (4)
  - Product substitution issue [Unknown]
  - Foreign body in throat [Unknown]
  - Drug ineffective [Unknown]
  - Product solubility abnormal [Unknown]

NARRATIVE: CASE EVENT DATE: 20200110
